FAERS Safety Report 23907363 (Version 1)
Quarter: 2024Q2

REPORT INFORMATION
  Report Type: Spontaneous
  Country: ZA (occurrence: None)
  Receive Date: 20240528
  Receipt Date: 20240528
  Transmission Date: 20240716
  Serious: Yes (Hospitalization)
  Sender: FDA-Public Use
  Company Number: 2024A118950

PATIENT
  Age: 48 Year
  Sex: Female

DRUGS (8)
  1. BUDESONIDE\FORMOTEROL [Suspect]
     Active Substance: BUDESONIDE\FORMOTEROL
     Indication: Asthma
     Dosage: UNKNOWN UNKNOWN
     Route: 055
  2. TIOTROPIUM BROMIDE [Concomitant]
     Active Substance: TIOTROPIUM BROMIDE
     Indication: Chronic obstructive pulmonary disease
  3. IVABRADINE HYDROCHLORIDE [Concomitant]
     Active Substance: IVABRADINE HYDROCHLORIDE
     Indication: Angina pectoris
  4. DULOXETINE HYDROCHLORIDE [Concomitant]
     Active Substance: DULOXETINE HYDROCHLORIDE
     Indication: Depression
  5. LEVOTHYROXINE [Concomitant]
     Active Substance: LEVOTHYROXINE\LEVOTHYROXINE SODIUM
     Indication: Hypothyroidism
  6. QUETIAPINE [Concomitant]
     Active Substance: QUETIAPINE
     Indication: Psychiatric investigation
  7. METFORMIN HYDROCHLORIDE [Concomitant]
     Active Substance: METFORMIN HYDROCHLORIDE
     Indication: Diabetes mellitus
  8. AMITRIPTYLINE [Concomitant]
     Active Substance: AMITRIPTYLINE
     Indication: Depression

REACTIONS (1)
  - Respiratory syncytial virus infection [Unknown]
